APPROVED DRUG PRODUCT: CARBOCAINE W/ NEO-COBEFRIN
Active Ingredient: LEVONORDEFRIN; MEPIVACAINE HYDROCHLORIDE
Strength: 0.05MG/ML;2%
Dosage Form/Route: INJECTABLE;INJECTION
Application: N012125 | Product #002
Applicant: EASTMAN KODAK CO
Approved: Approved Prior to Jan 1, 1982 | RLD: No | RS: No | Type: DISCN